FAERS Safety Report 6767264-0 (Version None)
Quarter: 2010Q2

REPORT INFORMATION
  Report Type: 
  Country: None (occurrence: None)
  Receive Date: 20100614
  Receipt Date: 20100603
  Transmission Date: 20101027
  Serious: Yes (Other)
  Sender: FDA-Public Use
  Company Number: US-ASTRAZENECA-2007UW27900

PATIENT
  Age: 80 Year
  Sex: Female
  Weight: 90.7 kg

DRUGS (4)
  1. ARIMIDEX [Suspect]
     Indication: BREAST CANCER FEMALE
     Route: 048
     Dates: start: 20071023
  2. CALCIUM CARBONATE [Concomitant]
     Route: 065
  3. VITAMIN TAB [Concomitant]
     Route: 065
  4. GLUCOSAMINE W/CHONDROITIN [Concomitant]
     Route: 065

REACTIONS (6)
  - ARTHRALGIA [None]
  - BLINDNESS UNILATERAL [None]
  - COGNITIVE DISORDER [None]
  - HAIR GROWTH ABNORMAL [None]
  - JOINT STIFFNESS [None]
  - WEIGHT INCREASED [None]
